FAERS Safety Report 8949512 (Version 3)
Quarter: 2013Q1

REPORT INFORMATION
  Report Type: Spontaneous
  Country: IT (occurrence: IT)
  Receive Date: 20121206
  Receipt Date: 20130115
  Transmission Date: 20140127
  Serious: Yes (Other)
  Sender: FDA-Public Use
  Company Number: IT-PFIZER INC-2012304771

PATIENT
  Age: 8 Year
  Sex: Male
  Weight: 27 kg

DRUGS (1)
  1. ORELOX [Suspect]
     Indication: UPPER RESPIRATORY TRACT INFECTION
     Dosage: 12.5 ML, 1X/DAY
     Route: 048
     Dates: start: 20121108, end: 20121109

REACTIONS (3)
  - Hallucination [Recovered/Resolved]
  - Loss of consciousness [Recovered/Resolved]
  - Tinnitus [Recovered/Resolved]
